FAERS Safety Report 8388753-1 (Version None)
Quarter: 2012Q2

REPORT INFORMATION
  Report Type: 
  Country: None (occurrence: None)
  Receive Date: 20120528
  Receipt Date: 20120515
  Transmission Date: 20120825
  Serious: Yes (Other)
  Sender: FDA-Public Use
  Company Number: FR-BRISTOL-MYERS SQUIBB COMPANY-16624918

PATIENT
  Age: 15 Year
  Sex: Female

DRUGS (3)
  1. DACTINOMYCIN [Suspect]
     Indication: RHABDOMYOSARCOMA
  2. CYCLOPHOSPHAMIDE [Suspect]
     Indication: RHABDOMYOSARCOMA
  3. DOXORUBICIN HCL [Suspect]
     Indication: RHABDOMYOSARCOMA

REACTIONS (3)
  - OLIGOHYDRAMNIOS [None]
  - PREGNANCY [None]
  - LIVE BIRTH [None]
